FAERS Safety Report 5851061-4 (Version None)
Quarter: 2008Q3

REPORT INFORMATION
  Report Type: 
  Country: None (occurrence: None)
  Receive Date: 20080820
  Receipt Date: 20080813
  Transmission Date: 20090109
  Serious: Yes (Hospitalization)
  Sender: FDA-Public Use
  Company Number: US-WATSON-2008-04898

PATIENT
  Age: 31 Year
  Sex: Male

DRUGS (3)
  1. TESTOSTERONE CYPIONATE [Suspect]
     Indication: DRUG ABUSE
     Dosage: UNK
     Route: 065
     Dates: start: 19980101, end: 20080101
  2. TESTOSTERONE ENANTHATE [Suspect]
     Indication: DRUG ABUSE
     Dosage: UNK
     Route: 065
     Dates: start: 19980101, end: 20080101
  3. TESTOSTERONE DECANOATE [Suspect]
     Indication: DRUG ABUSE
     Dosage: UNK
     Route: 065
     Dates: start: 19980101, end: 20080101

REACTIONS (1)
  - ACUTE MYOCARDIAL INFARCTION [None]
